FAERS Safety Report 13095045 (Version 1)
Quarter: 2017Q1

REPORT INFORMATION
  Report Type: Spontaneous
  Country: US (occurrence: US)
  Receive Date: 20170106
  Receipt Date: 20170106
  Transmission Date: 20170428
  Serious: No
  Sender: FDA-Public Use
  Company Number: US-GRANULES INDIA LIMITED-1061676

PATIENT
  Age: 71 Year
  Sex: Male
  Weight: 81.82 kg

DRUGS (1)
  1. METFORMIN HYDROCHLORIDE. [Suspect]
     Active Substance: METFORMIN HYDROCHLORIDE
     Indication: DIABETES MELLITUS

REACTIONS (3)
  - Treatment noncompliance [Unknown]
  - Blood glucose abnormal [Recovered/Resolved]
  - Drug ineffective [Unknown]
